FAERS Safety Report 8149190-8 (Version None)
Quarter: 2012Q1

REPORT INFORMATION
  Report Type: 
  Country: None (occurrence: None)
  Receive Date: 20120218
  Receipt Date: 20120106
  Transmission Date: 20120608
  Serious: No
  Sender: FDA-Public Use
  Company Number: US-ALLERGAN-1112150US

PATIENT
  Age: 40 Year
  Sex: Female

DRUGS (2)
  1. BOTULINUM TOXIN TYPE A [Suspect]
     Indication: PRODUCT USED FOR UNKNOWN INDICATION
     Dosage: 155 UNITS, SINGLE
     Route: 030
     Dates: start: 20110522, end: 20110522
  2. BOTULINUM TOXIN TYPE A [Suspect]
     Dosage: UNK
     Dates: start: 20111001

REACTIONS (1)
  - HAIR TEXTURE ABNORMAL [None]
